FAERS Safety Report 16117027 (Version 5)
Quarter: 2019Q3

REPORT INFORMATION
  Report Type: Spontaneous
  Country: US (occurrence: US)
  Receive Date: 20190326
  Receipt Date: 20190729
  Transmission Date: 20191004
  Serious: No
  Sender: FDA-Public Use
  Company Number: US-PFIZER INC-2016568559

PATIENT
  Age: 64 Year
  Sex: Female

DRUGS (28)
  1. TESSALON [Concomitant]
     Active Substance: BENZONATATE
     Indication: COUGH
     Dosage: 200 MG, AS NEEDED [TAKE 1 CAPSULE BY MOUTH 3 (THREE) TIMES A DAY ]
     Route: 048
     Dates: start: 20160706
  2. LEVOTHROID [Concomitant]
     Active Substance: LEVOTHYROXINE SODIUM
     Dosage: 150 UG, DAILY
     Dates: start: 20160926
  3. MOBIC [Concomitant]
     Active Substance: MELOXICAM
     Dosage: 7.5 MG, DAILY
     Route: 048
     Dates: start: 20160225
  4. CALCIUM CARBONATE W/COLECALCIFEROL [Concomitant]
     Active Substance: CALCIUM CARBONATE\CHOLECALCIFEROL
     Dosage: 1 DF, 2X/DAY(CALCIUM CARB-600MG]/[CHOLECALCIFEROL-800MG)
     Route: 048
     Dates: start: 20131121
  5. LODINE [Concomitant]
     Active Substance: ETODOLAC
     Dosage: 500 MG, 2X/DAY
     Dates: start: 20161025
  6. SYNTHROID [Concomitant]
     Active Substance: LEVOTHYROXINE SODIUM
     Dosage: 150 UG, DAILY
     Dates: start: 20160926
  7. SINGULAIR [Concomitant]
     Active Substance: MONTELUKAST SODIUM
     Dosage: 10 MG, DAILY
     Dates: start: 20160926
  8. LYRICA [Suspect]
     Active Substance: PREGABALIN
     Indication: FIBROMYALGIA
     Dosage: 150 MG, 3X/DAY
     Route: 048
     Dates: start: 2016, end: 20190602
  9. NEURONTIN [Concomitant]
     Active Substance: GABAPENTIN
     Dosage: 300 MG, 3X/DAY
     Route: 048
     Dates: start: 20161107
  10. HYCODAN [HYDROCODONE BITARTRATE] [Concomitant]
     Active Substance: HYDROCODONE BITARTRATE
     Indication: COUGH
     Dosage: 5 ML, AS NEEDED (EVERY 6 (SIX) HOURS ), (HYDROCODONE - 5MG/ HOMATROPINE -1.5MG)
     Route: 048
     Dates: start: 20160707
  11. HYZAAR [Concomitant]
     Active Substance: HYDROCHLOROTHIAZIDE\LOSARTAN POTASSIUM
     Dosage: 1 DF, DAILY(LOSARTAN POTASSIUM -100MG/ HCTZ-25MG)
     Route: 048
     Dates: start: 20161026
  12. LIPITOR [Concomitant]
     Active Substance: ATORVASTATIN CALCIUM
     Dosage: 10 MG, DAILY
     Dates: start: 20160615
  13. LASIX [Concomitant]
     Active Substance: FUROSEMIDE
     Dosage: 40 MG, DAILY
     Route: 048
     Dates: start: 20160614
  14. KEFLEX [Concomitant]
     Active Substance: CEPHALEXIN
     Dosage: 500 MG, 2X/DAY(1 CAPSULE (500 MG) BY ORAL ROUTE EVERY 12HOURS FOR 10DAYS)
     Route: 048
     Dates: start: 20161014
  15. CYMBALTA [Concomitant]
     Active Substance: DULOXETINE HYDROCHLORIDE
     Dosage: 30 MG, 1X/DAY(TAKE 1 CAPSULE AT BEDTIME)
     Dates: start: 20160831
  16. CYMBALTA [Concomitant]
     Active Substance: DULOXETINE HYDROCHLORIDE
     Dosage: 60 MG, DAILY
     Dates: start: 20161025
  17. PRILOSEC [Concomitant]
     Active Substance: OMEPRAZOLE MAGNESIUM
     Dosage: 40 MG, DAILY
     Route: 048
     Dates: start: 20131107
  18. DITROPAN [Concomitant]
     Active Substance: OXYBUTYNIN CHLORIDE
     Dosage: 5 MG, DAILY
     Dates: start: 20160926
  19. LIPITOR [Concomitant]
     Active Substance: ATORVASTATIN CALCIUM
     Dosage: 10 MG, DAILY
     Dates: start: 20160926
  20. BIOTIN [Concomitant]
     Active Substance: BIOTIN
     Dosage: 2500 UG, DAILY
     Route: 048
  21. PREMARIN [Concomitant]
     Active Substance: ESTROGENS, CONJUGATED
     Dosage: 0.3 MG, ALTERNATE DAY(1 TABLET EVERY OTHER DAY)
     Dates: start: 20160831
  22. MEDROL [Concomitant]
     Active Substance: METHYLPREDNISOLONE
     Dosage: 4 MG, UNK(USE AS DIRECTED BY PACKAGE INSTRUCTION)
     Dates: start: 20160815
  23. BACTROBAN [Concomitant]
     Active Substance: MUPIROCIN\MUPIROCIN CALCIUM
     Dosage: UNK, 3X/DAY (APPLY A SMALL AMOUNT TO AFFECTED AREA BY TOPICAL ROUTE 3 TIMES PER DAY FOR 10 DAY)
     Route: 061
     Dates: start: 20161014
  24. BLEPH-10 [Concomitant]
     Active Substance: SULFACETAMIDE SODIUM
     Dosage: 2 GTT, 3X/DAY
     Route: 047
     Dates: start: 20151124
  25. LYRICA [Suspect]
     Active Substance: PREGABALIN
     Indication: DEPRESSION
  26. ZYRTEC [Concomitant]
     Active Substance: CETIRIZINE HYDROCHLORIDE
     Dosage: 10 MG, DAILY
     Route: 048
  27. RESTASIS [Concomitant]
     Active Substance: CYCLOSPORINE
     Dosage: 2 GTT, 2X/DAY [1 DROP TO BOTH EYES EVERY 12 (TWELVE) HOUR]
     Route: 047
     Dates: start: 20161105
  28. K-DUR [Concomitant]
     Active Substance: POTASSIUM CHLORIDE
     Dosage: 10 MEQ, DAILY
     Route: 048
     Dates: start: 20160901

REACTIONS (1)
  - Withdrawal syndrome [Not Recovered/Not Resolved]

NARRATIVE: CASE EVENT DATE: 20190602
